FAERS Safety Report 19447721 (Version 1)
Quarter: 2021Q2

REPORT INFORMATION
  Report Type: Report from Study
  Country: US (occurrence: US)
  Receive Date: 20210622
  Receipt Date: 20210622
  Transmission Date: 20210717
  Serious: Yes (Hospitalization)
  Sender: FDA-Public Use
  Company Number: US-QED THERAPEUTICS-2112975

PATIENT
  Age: 44 Year
  Sex: Female
  Weight: 82.3 kg

DRUGS (6)
  1. TRUSELTIQ [Suspect]
     Active Substance: INFIGRATINIB
     Indication: ADENOCARCINOMA
     Route: 048
     Dates: start: 20200213, end: 20200303
  2. EMLA [Concomitant]
     Active Substance: LIDOCAINE\PRILOCAINE
     Dates: start: 20200213
  3. INFIGRATINIB [Suspect]
     Active Substance: INFIGRATINIB
     Route: 048
     Dates: start: 20200408, end: 20200721
  4. SEVELAMER [Concomitant]
     Active Substance: SEVELAMER
     Dates: start: 20200220
  5. INFIGRATINIB [Suspect]
     Active Substance: INFIGRATINIB
     Route: 048
     Dates: start: 20200311, end: 20200322
  6. IBUPROFEN. [Concomitant]
     Active Substance: IBUPROFEN
     Dates: start: 201911, end: 20200408

REACTIONS (1)
  - Erythema nodosum [Recovering/Resolving]

NARRATIVE: CASE EVENT DATE: 20200304
